FAERS Safety Report 6150888-1 (Version None)
Quarter: 2009Q2

REPORT INFORMATION
  Report Type: 
  Country: None (occurrence: None)
  Receive Date: 20090408
  Receipt Date: 20090402
  Transmission Date: 20091009
  Serious: Yes (Other)
  Sender: FDA-Public Use
  Company Number: CHPA2009US08532

PATIENT
  Age: 64 Year
  Sex: Female
  Weight: 72.6 kg

DRUGS (2)
  1. EX-LAX MAX STR LAX PILLS SENNA (NCH) (SENNA GLYCOSIDES (CA SALTS OF PU [Suspect]
     Indication: CONSTIPATION
     Dosage: ORAL
     Route: 048
     Dates: start: 20081001, end: 20090301
  2. ALL OTHER THERAPEUTIC PRODUCTS (NO INGREDIENTS/ SUBSTACES) [Concomitant]

REACTIONS (1)
  - RECTAL HAEMORRHAGE [None]
